FAERS Safety Report 4335630-9 (Version None)
Quarter: 2004Q2

REPORT INFORMATION
  Report Type: 
  Country: None (occurrence: None)
  Receive Date: 20040409
  Receipt Date: 20040329
  Transmission Date: 20050107
  Serious: Yes (Death)
  Sender: FDA-Public Use
  Company Number: IT-MERCK-0404ITA00003

PATIENT
  Age: 59 Year
  Sex: Male

DRUGS (1)
  1. PRIMAXIN [Suspect]
     Indication: SEPSIS
     Route: 042

REACTIONS (1)
  - SEPSIS [None]
